FAERS Safety Report 6313716-7 (Version None)
Quarter: 2009Q3

REPORT INFORMATION
  Report Type: 
  Country: None (occurrence: None)
  Receive Date: 20090818
  Receipt Date: 19990727
  Transmission Date: 20100115
  Serious: Yes (Hospitalization)
  Sender: FDA-Public Use
  Company Number: US-BRISTOL-MYERS SQUIBB COMPANY-10033975

PATIENT
  Age: 34 Year
  Sex: Female

DRUGS (5)
  1. VIDEX [Suspect]
     Indication: HIV INFECTION
     Route: 048
     Dates: start: 19990130
  2. ZERIT [Suspect]
     Indication: HIV INFECTION
     Route: 048
     Dates: start: 19990130
  3. LAMIVUDINE + ZIDOVUDINE [Suspect]
     Indication: HIV INFECTION
     Route: 048
     Dates: start: 19961001
  4. SAQUINAVIR [Suspect]
     Indication: HIV INFECTION
     Route: 048
     Dates: start: 19990130
  5. PAXIL [Concomitant]
     Indication: ANXIETY
     Dates: start: 19980501

REACTIONS (3)
  - DRUG EXPOSURE DURING PREGNANCY [None]
  - LACTIC ACIDOSIS [None]
  - NORMAL NEWBORN [None]
